FAERS Safety Report 26110614 (Version 1)
Quarter: 2025Q4

REPORT INFORMATION
  Report Type: Spontaneous
  Country: EU (occurrence: EU)
  Receive Date: 20251202
  Receipt Date: 20251202
  Transmission Date: 20260118
  Serious: Yes (Other)
  Sender: BRISTOL-MYERS SQUIBB COMPANY
  Company Number: EU-GSK-ES2025EME117706

PATIENT
  Age: 82 Year
  Sex: Male

DRUGS (2)
  1. POMALIDOMIDE [Suspect]
     Active Substance: POMALIDOMIDE
     Indication: Product used for unknown indication
     Dosage: UNK
  2. BELANTAMAB MAFODOTIN [Suspect]
     Active Substance: BELANTAMAB MAFODOTIN
     Indication: Plasma cell myeloma
     Dosage: UNK

REACTIONS (3)
  - Keratopathy [Not Recovered/Not Resolved]
  - Tremor [Not Recovered/Not Resolved]
  - Meningitis [Unknown]

NARRATIVE: CASE EVENT DATE: 20250814
